FAERS Safety Report 4747991-7 (Version None)
Quarter: 2005Q3

REPORT INFORMATION
  Report Type: 
  Country: None (occurrence: None)
  Receive Date: 20050817
  Receipt Date: 20050817
  Transmission Date: 20060218
  Serious: Yes (Other)
  Sender: FDA-Public Use
  Company Number: None

PATIENT
  Sex: Male
  Weight: 12.0657 kg

DRUGS (1)
  1. GLYCOLAX [Suspect]
     Indication: CONSTIPATION
     Dosage: FREQUENCY 2 DOSES  8.5 OZ PER 4-8 C'S WATER ORALLY
     Route: 048

REACTIONS (2)
  - ABDOMINAL PAIN [None]
  - PHARMACEUTICAL PRODUCT COMPLAINT [None]
